FAERS Safety Report 9715668 (Version 1)
Quarter: 2013Q4

REPORT INFORMATION
  Report Type: Spontaneous
  Country: US (occurrence: US)
  Receive Date: 20131127
  Receipt Date: 20131127
  Transmission Date: 20140711
  Serious: No
  Sender: FDA-Public Use
  Company Number: US-009507513-1311USA009296

PATIENT
  Sex: Female

DRUGS (1)
  1. JANUMET XR [Suspect]
     Indication: TYPE 2 DIABETES MELLITUS
     Dosage: 50/1000MG TAKEN ONCE DAILY
     Route: 048

REACTIONS (3)
  - Removal of foreign body from gastrointestinal tract [Recovered/Resolved]
  - Abdominal discomfort [Recovered/Resolved]
  - Product solubility abnormal [Unknown]
